FAERS Safety Report 6553045-X (Version None)
Quarter: 2010Q1

REPORT INFORMATION
  Report Type: 
  Country: None (occurrence: None)
  Receive Date: 20100122
  Receipt Date: 20100113
  Transmission Date: 20100710
  Serious: Yes (Death, Hospitalization, Other)
  Sender: FDA-Public Use
  Company Number: 237254K09USA

PATIENT
  Age: 38 Year
  Sex: Female
  Weight: 131 kg

DRUGS (6)
  1. REBIF [Suspect]
     Indication: MULTIPLE SCLEROSIS
     Dosage: 44 MCG, 3 IN 1 WEEKS, SUBCUTANEOUS
     Route: 058
     Dates: start: 20060926, end: 20091231
  2. TYLENOL [Concomitant]
  3. LISINOPRIL [Concomitant]
  4. THYROID MEDICATION (THYROID THERAPY) [Concomitant]
  5. STOMACH PILL (ALL OTHER THERAPEUTIC PRODUCTS) [Concomitant]
  6. UNSPECIFIED MEDICATIONS (ALL OTHER THERAPEUTIC PRODUCTS) [Concomitant]

REACTIONS (8)
  - CARDIAC ARREST [None]
  - CARDIAC FAILURE CONGESTIVE [None]
  - CARDIOMEGALY [None]
  - COUGH [None]
  - DECREASED APPETITE [None]
  - MYOCARDIAL INFARCTION [None]
  - OXYGEN SATURATION DECREASED [None]
  - SLEEP APNOEA SYNDROME [None]
